FAERS Safety Report 9124912 (Version 5)
Quarter: 2013Q2

REPORT INFORMATION
  Report Type: Report from Study
  Country: DE (occurrence: DE)
  Receive Date: 20130227
  Receipt Date: 20130503
  Transmission Date: 20140414
  Serious: Yes (Hospitalization)
  Sender: FDA-Public Use
  Company Number: DE-B.I. PHARMACEUTICALS,INC./RIDGEFIELD-2013-BI-00837BI

PATIENT
  Age: 73 Year
  Sex: Male
  Weight: 90 kg

DRUGS (16)
  1. PLACEBO [Suspect]
     Indication: IDIOPATHIC PULMONARY FIBROSIS
     Dosage: 300 MG
     Route: 048
     Dates: start: 20120202, end: 20130129
  2. PRADAXA [Suspect]
     Indication: ATRIAL FIBRILLATION
     Dosage: 110 MG
     Route: 048
     Dates: start: 20130130, end: 20130130
  3. DECORTIN [Suspect]
     Indication: IDIOPATHIC PULMONARY FIBROSIS
     Dosage: 50 MG
     Route: 048
     Dates: start: 20130113, end: 20130121
  4. DECORTIN [Suspect]
     Dosage: 40 MG
     Route: 048
     Dates: start: 20130122, end: 20130128
  5. DECORTIN [Suspect]
     Dosage: 30 MG
     Route: 048
     Dates: start: 20130129
  6. URBASON [Suspect]
     Indication: IDIOPATHIC PULMONARY FIBROSIS
     Dosage: 500 MG
     Route: 042
     Dates: start: 20130110, end: 20130112
  7. DELIX [Concomitant]
     Indication: HYPERTENSION
     Dosage: 10 MG
     Route: 048
     Dates: start: 1997
  8. VERAPAMIL [Concomitant]
     Indication: HYPERTENSION
     Dosage: 240 MG
     Route: 048
     Dates: start: 2002
  9. TORASEMID [Concomitant]
     Indication: HYPERTENSION
     Dosage: 2.5 MG
     Route: 048
     Dates: start: 2009
  10. STANGYL [Concomitant]
     Indication: INSOMNIA
     Dosage: 12.5 MG
     Route: 048
     Dates: start: 201111
  11. THYRONAJOD [Concomitant]
     Indication: HYPOTHYROIDISM
     Dosage: 100 MCG
     Route: 048
     Dates: start: 1997
  12. PANTOZOL [Concomitant]
     Indication: GASTROOESOPHAGEAL REFLUX DISEASE
     Dosage: 40 MG
     Route: 048
     Dates: start: 2009
  13. BIO- MAGNESIUM [Concomitant]
     Indication: MUSCLE SPASMS
     Dosage: 1-2 TABLETS
     Route: 048
     Dates: start: 2002
  14. LIPOTALON [Concomitant]
     Indication: OSTEOARTHRITIS
     Dosage: 2.5 MG
     Route: 014
     Dates: start: 201210, end: 20121205
  15. ZOPICLONE [Concomitant]
     Indication: INSOMNIA
     Dosage: 7.5 MG
     Route: 048
     Dates: start: 20130126
  16. CLEXANE [Concomitant]
     Indication: ATRIAL FIBRILLATION
     Dosage: 90 MG
     Route: 058
     Dates: start: 20130129, end: 20130129

REACTIONS (3)
  - Idiopathic pulmonary fibrosis [Not Recovered/Not Resolved]
  - Haemoptysis [Recovered/Resolved]
  - Substance-induced psychotic disorder [Recovered/Resolved]
